FAERS Safety Report 4917254-5 (Version None)
Quarter: 2006Q1

REPORT INFORMATION
  Report Type: 
  Country: None (occurrence: None)
  Receive Date: 20060221
  Receipt Date: 20041005
  Transmission Date: 20060701
  Serious: Yes (Hospitalization, Disabling)
  Sender: FDA-Public Use
  Company Number: US-MERCK-0410USA00721

PATIENT
  Age: 52 Year
  Sex: Male
  Weight: 141 kg

DRUGS (10)
  1. VIOXX [Suspect]
     Indication: OSTEOARTHRITIS
     Route: 048
     Dates: start: 20010101, end: 20040101
  2. VIOXX [Suspect]
     Route: 048
     Dates: start: 20010101, end: 20040101
  3. GLUCOPHAGE [Concomitant]
     Route: 065
  4. ASPIRIN [Concomitant]
     Route: 065
  5. ALBUTEROL [Concomitant]
     Route: 055
  6. ATENOLOL [Concomitant]
     Route: 065
  7. FLEXERIL [Concomitant]
     Indication: MUSCLE SPASMS
     Route: 048
  8. LOTENSIN [Concomitant]
     Route: 065
  9. PAXIL [Concomitant]
     Route: 065
  10. LIPITOR [Concomitant]
     Route: 065

REACTIONS (9)
  - CEREBELLAR INFARCTION [None]
  - CHEST PAIN [None]
  - CONTUSION [None]
  - DIABETES MELLITUS [None]
  - DYSPNOEA EXERTIONAL [None]
  - HYPERLIPIDAEMIA [None]
  - HYPERTENSION [None]
  - LACUNAR INFARCTION [None]
  - VERTIGO POSITIONAL [None]
